FAERS Safety Report 8147630 (Version 3)
Quarter: 2013Q3

REPORT INFORMATION
  Report Type: Spontaneous
  Country: US (occurrence: US)
  Receive Date: 20110922
  Receipt Date: 20130726
  Transmission Date: 20140515
  Serious: Yes (Other)
  Sender: FDA-Public Use
  Company Number: US-ASTRAZENECA-2011SE12490

PATIENT
  Age: 34 Year
  Sex: Female

DRUGS (10)
  1. SEROQUEL [Suspect]
     Route: 048
  2. SEROQUEL [Suspect]
     Route: 048
     Dates: start: 20080710, end: 20080815
  3. AMITRIPTYLIN [Concomitant]
     Dates: start: 20080214, end: 20080417
  4. AMITRIPTYLIN [Concomitant]
     Dates: start: 20080528, end: 20080528
  5. AMITRIPTYLIN [Concomitant]
     Dates: start: 20080529, end: 20080717
  6. AMITRIPTYLIN [Concomitant]
     Dates: start: 20080929, end: 20090103
  7. IBU [Concomitant]
     Dates: start: 20080214, end: 20080214
  8. PSEUDOEPHEDR [Concomitant]
     Dates: start: 20080214, end: 20080214
  9. FLAGYL [Concomitant]
     Dates: start: 20101002
  10. PREDNISONE [Concomitant]
     Dates: start: 20101002

REACTIONS (3)
  - Diabetic coma [Unknown]
  - Pancreatitis [Unknown]
  - Type 2 diabetes mellitus [Unknown]
